FAERS Safety Report 4337418-1 (Version None)
Quarter: 2004Q2

REPORT INFORMATION
  Report Type: 
  Country: None (occurrence: None)
  Receive Date: 20040407
  Receipt Date: 20040319
  Transmission Date: 20050107
  Serious: Yes (Hospitalization, Other)
  Sender: FDA-Public Use
  Company Number: 200310164BCA

PATIENT
  Age: 70 Year
  Sex: Female
  Weight: 61.4 kg

DRUGS (16)
  1. MOXIFLOXACIN [Suspect]
     Indication: ABDOMINAL INFECTION
     Dosage: 400 MG, TOTAL DAILY, INTRAVENO
     Route: 042
     Dates: start: 20030214, end: 20030219
  2. MOXIFLOXACIN [Suspect]
     Indication: ABDOMINAL INFECTION
     Dosage: 400 MG, TOTAL DAILY, INTRAVENO
     Route: 042
     Dates: start: 20030220
  3. RANITIDINE [Concomitant]
  4. POTASSIUM CHLORIDE [Concomitant]
  5. HEPARIN [Concomitant]
  6. ALTACE [Concomitant]
  7. NARCAN [Concomitant]
  8. DILAUDID /CAN/ [Concomitant]
  9. DOBUTAMINE [Concomitant]
  10. CALCIUM CHLORIDE [Concomitant]
  11. GRAVOL TAB [Concomitant]
  12. RINGER-LAKTAT [Concomitant]
  13. FENTANYL [Concomitant]
  14. DEMEROL [Concomitant]
  15. TALWIN [Concomitant]
  16. DULCOLAX [Concomitant]

REACTIONS (12)
  - CEREBROVASCULAR ACCIDENT [None]
  - CONSTIPATION [None]
  - ENDOSCOPY ABNORMAL [None]
  - GASTROINTESTINAL HAEMORRHAGE [None]
  - HYPERTENSION [None]
  - HYPOCALCAEMIA [None]
  - HYPOTENSION [None]
  - INFLAMMATION [None]
  - LOSS OF CONSCIOUSNESS [None]
  - NAUSEA [None]
  - PAIN [None]
  - URINE OUTPUT DECREASED [None]
